FAERS Safety Report 4947550-7 (Version None)
Quarter: 2006Q1

REPORT INFORMATION
  Report Type: 
  Country: None (occurrence: None)
  Receive Date: 20060314
  Receipt Date: 20060302
  Transmission Date: 20060701
  Serious: Yes (Other)
  Sender: FDA-Public Use
  Company Number: 2006032835

PATIENT
  Age: 51 Year
  Sex: Female
  Weight: 52.1637 kg

DRUGS (5)
  1. LYRICA [Suspect]
     Indication: FIBROMYALGIA
     Dosage: 300 MG (150 MG, 2 IN 1 D), ORAL
     Route: 048
     Dates: start: 20050922
  2. AMBIEN [Concomitant]
  3. LUNESTA [Concomitant]
  4. ULTRACET [Concomitant]
  5. KLONOPIN [Concomitant]

REACTIONS (18)
  - ABASIA [None]
  - AMNESIA [None]
  - ANGER [None]
  - CONDITION AGGRAVATED [None]
  - CONFUSIONAL STATE [None]
  - COORDINATION ABNORMAL [None]
  - DECREASED ACTIVITY [None]
  - DEHYDRATION [None]
  - DRUG INEFFECTIVE [None]
  - DYSKINESIA [None]
  - FIBROMYALGIA [None]
  - HYPOTENSION [None]
  - INCOHERENT [None]
  - INSOMNIA [None]
  - PAIN [None]
  - SEDATION [None]
  - TRANSIENT ISCHAEMIC ATTACK [None]
  - VISION BLURRED [None]
